FAERS Safety Report 9547226 (Version 1)
Quarter: 2013Q2

REPORT INFORMATION
  Report Type: Spontaneous
  Country: US (occurrence: None)
  Receive Date: 20130524
  Receipt Date: 20130524
  Transmission Date: 20140414
  Serious: No
  Sender: FDA-Public Use
  Company Number: PHEH2012US024297

PATIENT
  Sex: Female
  Weight: 67.1 kg

DRUGS (3)
  1. GILENYA [Suspect]
     Indication: MULTIPLE SCLEROSIS
     Route: 048
     Dates: start: 20121018
  2. ADVAIR (FLUTICASONE PROPIONATE, SALMETREROL XINAFOATE) [Concomitant]
  3. PROVAIR [Concomitant]

REACTIONS (1)
  - No adverse event [None]
